FAERS Safety Report 8000580-3 (Version None)
Quarter: 2011Q4

REPORT INFORMATION
  Report Type: 
  Country: None (occurrence: None)
  Receive Date: 20111216
  Receipt Date: 20111205
  Transmission Date: 20120403
  Serious: Yes (Life-Threatening)
  Sender: FDA-Public Use
  Company Number: 2011MA017457

PATIENT
  Sex: Female

DRUGS (1)
  1. PAREGORIC W/ 1% NALOXONE SOLUTION [Suspect]
     Indication: CAESAREAN SECTION
     Dosage: 2 MG;1X;SUBC
     Route: 058

REACTIONS (1)
  - RESPIRATORY DEPRESSION [None]
